FAERS Safety Report 8351968-2 (Version None)
Quarter: 2012Q2

REPORT INFORMATION
  Report Type: 
  Country: None (occurrence: None)
  Receive Date: 20120511
  Receipt Date: 20120430
  Transmission Date: 20120825
  Serious: Yes (Death, Hospitalization, Other)
  Sender: FDA-Public Use
  Company Number: US-ELI_LILLY_AND_COMPANY-US201010002767

PATIENT
  Sex: Female

DRUGS (23)
  1. COUMADIN [Concomitant]
     Dosage: 2 MG, UNK
  2. PREDNISONE [Concomitant]
     Dosage: 7.5 MG, DAILY (1/D)
  3. PRASTERONE [Concomitant]
     Dosage: 25 MG, DAILY (1/D)
  4. FERROUS SULFATE TAB [Concomitant]
     Dosage: 325 MG, DAILY (1/D)
  5. CALCIUM CITRATE W/VITAMIN D NOS [Concomitant]
     Dosage: 1260 MG, DAILY (1/D)
  6. REMICADE [Concomitant]
     Indication: ARTHRITIS
  7. RECLAST [Concomitant]
  8. FORTEO [Suspect]
     Dosage: 20 UG, DAILY (1/D)
     Dates: start: 20100701
  9. CELEBREX [Concomitant]
     Dosage: 400 MG, DAILY (1/D)
  10. VITAMIN C [Concomitant]
     Dosage: 1000 MG, DAILY (1/D)
  11. METHOTREXATE [Concomitant]
     Dosage: 0.5 ML, WEEKLY (1/W)
  12. PRILOSEC [Concomitant]
     Dosage: 20 MG, DAILY (1/D)
  13. LOPRESSOR [Concomitant]
     Dosage: 150 MG, DAILY (1/D)
  14. MULTI-VITAMINS [Concomitant]
  15. ZOCOR [Concomitant]
     Dosage: 40 MG, DAILY (1/D)
  16. FORTEO [Suspect]
     Indication: OSTEOPOROSIS
     Dosage: 20 UG, DAILY (1/D)
     Dates: start: 20080701, end: 20090801
  17. COUMADIN [Concomitant]
     Dosage: 3 MG, UNK
  18. FOLIC ACID [Concomitant]
     Dosage: 1 MG, DAILY (1/D)
  19. LYRICA [Concomitant]
     Dosage: 450 MG, DAILY (1/D)
  20. AROMASIN [Concomitant]
     Dosage: 25 MG, DAILY (1/D)
  21. VITAMIN D [Concomitant]
     Dosage: 1000 U, DAILY (1/D)
  22. TRIMETHOPRIM [Concomitant]
     Dosage: 100 MG, DAILY (1/D)
  23. MAGNESIUM OXIDE [Concomitant]
     Dosage: 800 MG, DAILY (1/D)

REACTIONS (8)
  - ATRIAL FIBRILLATION [None]
  - SPINAL OPERATION [None]
  - DEATH [None]
  - PULMONARY EMBOLISM [None]
  - IMPAIRED HEALING [None]
  - ASTHENIA [None]
  - UPPER LIMB FRACTURE [None]
  - WALKING AID USER [None]
